FAERS Safety Report 11492683 (Version 1)
Quarter: 2015Q3

REPORT INFORMATION
  Report Type: Spontaneous
  Country: FR (occurrence: FR)
  Receive Date: 20150910
  Receipt Date: 20150910
  Transmission Date: 20151125
  Serious: Yes (Hospitalization)
  Sender: FDA-Public Use
  Company Number: FR-HOSPIRA-2994807

PATIENT
  Age: 70 Year
  Sex: Female

DRUGS (6)
  1. CYTARABINE SANDOZ [Concomitant]
     Active Substance: CYTARABINE
     Indication: CHEMOTHERAPY
     Dates: start: 20150506
  2. CALCIUM LEVOFOLINATE [Concomitant]
     Active Substance: LEVOLEUCOVORIN CALCIUM
     Indication: PRODUCT USED FOR UNKNOWN INDICATION
  3. VANCOMYCINE SANDOZ [Suspect]
     Active Substance: VANCOMYCIN
     Indication: ANTIBIOTIC THERAPY
  4. METHOTREXATE (METHOTREXATE SODIUM) [Concomitant]
     Active Substance: METHOTREXATE SODIUM
     Indication: CHEMOTHERAPY
     Dates: start: 20150505
  5. ETOPOSIDE TEVA [Suspect]
     Active Substance: ETOPOSIDE
     Indication: SALVAGE THERAPY
     Dosage: AT D1 AND D2
     Dates: start: 20150529
  6. CARBOPLATIN HOSPIRA [Suspect]
     Active Substance: CARBOPLATIN
     Indication: SALVAGE THERAPY
     Dosage: AT D2
     Dates: start: 20150529

REACTIONS (4)
  - Melaena [Recovered/Resolved]
  - Haemorrhage [Recovered/Resolved]
  - Renal failure [Recovered/Resolved]
  - Hepatic failure [Recovered/Resolved]

NARRATIVE: CASE EVENT DATE: 201505
